FAERS Safety Report 6131400-X (Version None)
Quarter: 2009Q1

REPORT INFORMATION
  Report Type: 
  Country: None (occurrence: None)
  Receive Date: 20090325
  Receipt Date: 20080529
  Transmission Date: 20090719
  Serious: Yes (Other)
  Sender: FDA-Public Use
  Company Number: US-BRISTOL-MYERS SQUIBB COMPANY-14190938

PATIENT
  Age: 47 Year
  Sex: Male
  Weight: 113 kg

DRUGS (4)
  1. ERBITUX [Suspect]
     Indication: COLON CANCER METASTATIC
     Route: 042
  2. MORPHINE [Concomitant]
  3. CORTISONE CREAM [Concomitant]
  4. BENADRYL [Concomitant]
     Indication: PREMEDICATION

REACTIONS (3)
  - BLOOD PRESSURE DECREASED [None]
  - FLUSHING [None]
  - URTICARIA [None]
